FAERS Safety Report 23509388 (Version 1)
Quarter: 2024Q1

REPORT INFORMATION
  Report Type: Spontaneous
  Country: US (occurrence: US)
  Receive Date: 20240210
  Receipt Date: 20240210
  Transmission Date: 20240410
  Serious: Yes (Life-Threatening, Hospitalization, Other)
  Sender: FDA-Public Use
  Company Number: US-GRANULES-US-2024GRALIT00026

PATIENT
  Age: 53 Year
  Sex: Female

DRUGS (5)
  1. BUPROPION HYDROCHLORIDE [Suspect]
     Active Substance: BUPROPION HYDROCHLORIDE
     Indication: Product used for unknown indication
     Route: 048
  2. CLONIDINE [Concomitant]
     Active Substance: CLONIDINE
     Indication: Product used for unknown indication
     Route: 048
  3. FLUOXETINE [Concomitant]
     Active Substance: FLUOXETINE HYDROCHLORIDE
     Indication: Product used for unknown indication
     Route: 048
  4. GABAPENTIN [Concomitant]
     Active Substance: GABAPENTIN
     Indication: Product used for unknown indication
     Route: 048
  5. QUETIAPINE [Concomitant]
     Active Substance: QUETIAPINE
     Indication: Product used for unknown indication
     Route: 048

REACTIONS (19)
  - Myoclonus [Unknown]
  - Hypotonia [Unknown]
  - Normochromic normocytic anaemia [Unknown]
  - Blood creatine phosphokinase increased [Unknown]
  - Blood lactic acid increased [Unknown]
  - Acidosis [Unknown]
  - Electrocardiogram QT prolonged [Recovered/Resolved]
  - Ejection fraction decreased [Recovered/Resolved]
  - Respiratory failure [Unknown]
  - Acute respiratory distress syndrome [Unknown]
  - Electrocardiogram QRS complex prolonged [Recovering/Resolving]
  - Haemodynamic instability [Unknown]
  - Bundle branch block left [Unknown]
  - Systolic dysfunction [Recovered/Resolved]
  - Toxicity to various agents [Unknown]
  - Seizure [Unknown]
  - Hypotension [Recovering/Resolving]
  - Ventricular hypokinesia [Unknown]
  - Intentional product misuse [Unknown]
